FAERS Safety Report 18064446 (Version 2)
Quarter: 2021Q1

REPORT INFORMATION
  Report Type: Spontaneous
  Country: US (occurrence: US)
  Receive Date: 20200724
  Receipt Date: 20210317
  Transmission Date: 20210419
  Serious: Yes (Other)
  Sender: FDA-Public Use
  Company Number: US-GLAXOSMITHKLINE-US2020140363

PATIENT
  Sex: Male

DRUGS (7)
  1. RANITIDINE HCI [Suspect]
     Active Substance: RANITIDINE HYDROCHLORIDE
  2. RANITIDINE. [Suspect]
     Active Substance: RANITIDINE
     Indication: ANAPHYLACTIC REACTION
     Dosage: 150 MG, QD
     Route: 065
     Dates: start: 199401, end: 202004
  3. ZANTAC [Suspect]
     Active Substance: RANITIDINE HYDROCHLORIDE
     Indication: ANAPHYLACTIC REACTION
     Dosage: 150 MG, QD
     Route: 065
     Dates: start: 199401, end: 202004
  4. ZANTAC [Suspect]
     Active Substance: RANITIDINE HYDROCHLORIDE
  5. RANITIDINE CAPSULE [Suspect]
     Active Substance: RANITIDINE
     Indication: ANAPHYLACTIC REACTION
     Dosage: 150 MG, QD
     Route: 065
     Dates: start: 199401, end: 202004
  6. ZANTAC [Suspect]
     Active Substance: RANITIDINE HYDROCHLORIDE
     Indication: ANAPHYLACTIC REACTION
     Dosage: 150 MG, QD
     Route: 065
     Dates: start: 199401, end: 202004
  7. ZANTAC [Suspect]
     Active Substance: RANITIDINE HYDROCHLORIDE
     Indication: ANAPHYLACTIC REACTION
     Dosage: 150 MG, QD
     Route: 065
     Dates: start: 199401, end: 202004

REACTIONS (1)
  - Prostate cancer [Unknown]
